FAERS Safety Report 16797021 (Version 1)
Quarter: 2019Q3

REPORT INFORMATION
  Report Type: Report from Study
  Country: None (occurrence: NZ)
  Receive Date: 20190911
  Receipt Date: 20190911
  Transmission Date: 20191005
  Serious: Yes (Hospitalization)
  Sender: FDA-Public Use
  Company Number: NZ-ABBVIE-19K-118-2917014-00

PATIENT
  Weight: 33.7 kg

DRUGS (1)
  1. HUMIRA [Suspect]
     Active Substance: ADALIMUMAB
     Indication: CROHN^S DISEASE
     Route: 058
     Dates: start: 2019

REACTIONS (9)
  - Weight increased [Unknown]
  - Gastrointestinal dilation procedure [Unknown]
  - Gastrointestinal disorder [Unknown]
  - Gastrointestinal pain [Unknown]
  - Crohn^s disease [Unknown]
  - Pseudodiverticular disease [Unknown]
  - Feeding intolerance [Unknown]
  - Malnutrition [Unknown]
  - Inflammation [Not Recovered/Not Resolved]
